FAERS Safety Report 16334108 (Version 1)
Quarter: 2019Q2

REPORT INFORMATION
  Report Type: Spontaneous
  Country: BG (occurrence: BG)
  Receive Date: 20190520
  Receipt Date: 20190520
  Transmission Date: 20190711
  Serious: Yes (Other)
  Sender: FDA-Public Use
  Company Number: BG-BAYER-2019-094885

PATIENT
  Age: 66 Year
  Sex: Male

DRUGS (1)
  1. STIVARGA [Suspect]
     Active Substance: REGORAFENIB
     Indication: COLON CANCER
     Dosage: 40 MG, BID
     Route: 048
     Dates: start: 20190317, end: 20190510

REACTIONS (5)
  - Blood bilirubin increased [None]
  - General physical health deterioration [None]
  - Pain [None]
  - Decreased appetite [None]
  - Colon cancer [None]
